FAERS Safety Report 9342446 (Version 2)
Quarter: 2013Q4

REPORT INFORMATION
  Report Type: Spontaneous
  Country: JP (occurrence: JP)
  Receive Date: 20130611
  Receipt Date: 20131129
  Transmission Date: 20140711
  Serious: Yes (Other)
  Sender: FDA-Public Use
  Company Number: PHHY2013JP059032

PATIENT
  Age: 48 Year
  Sex: Female
  Weight: 80 kg

DRUGS (6)
  1. TEGRETOL [Suspect]
     Indication: EPILEPSY
     Route: 048
  2. NEORAL [Interacting]
     Indication: STILL^S DISEASE ADULT ONSET
     Dosage: 300 MG, UNK
     Route: 048
  3. NEORAL [Interacting]
     Indication: OFF LABEL USE
  4. PHENOBAL [Concomitant]
     Indication: EPILEPSY
  5. ALEVIATIN [Concomitant]
     Indication: EPILEPSY
  6. CORTICOSTEROIDS [Concomitant]
     Indication: STILL^S DISEASE ADULT ONSET

REACTIONS (3)
  - Drug interaction [Unknown]
  - Immunosuppressant drug level decreased [Unknown]
  - Pyrexia [Unknown]
